FAERS Safety Report 5515144-0 (Version None)
Quarter: 2007Q4

REPORT INFORMATION
  Report Type: 
  Country: None (occurrence: None)
  Receive Date: 20071113
  Receipt Date: 20070215
  Transmission Date: 20080405
  Serious: No
  Sender: FDA-Public Use
  Company Number: A0636154A

PATIENT
  Age: 87 Year
  Sex: Female

DRUGS (2)
  1. COREG [Suspect]
     Indication: HYPERTENSION
     Dosage: 50MG TWICE PER DAY
     Route: 048
  2. ATIVAN [Concomitant]

REACTIONS (5)
  - DRY MOUTH [None]
  - ERYTHEMA [None]
  - ORAL PAIN [None]
  - OVERDOSE [None]
  - STOMATITIS [None]
